FAERS Safety Report 20070097 (Version 1)
Quarter: 2021Q4

REPORT INFORMATION
  Report Type: Spontaneous
  Country: JP (occurrence: JP)
  Receive Date: 20211115
  Receipt Date: 20211115
  Transmission Date: 20220303
  Serious: Yes (Other)
  Sender: FDA-Public Use
  Company Number: JP-NAPPMUNDI-GBR-2021-0092445

PATIENT
  Sex: Female

DRUGS (4)
  1. NORSPAN [Suspect]
     Active Substance: BUPRENORPHINE
     Indication: Product used for unknown indication
     Dosage: 20 MCG, Q1H
     Route: 062
  2. NORSPAN [Suspect]
     Active Substance: BUPRENORPHINE
     Dosage: 15 MCG, Q1H (A PATCH OF 5 MCG/H AND A PATCH OF 10 MCG/H)
     Route: 062
  3. NORSPAN [Suspect]
     Active Substance: BUPRENORPHINE
     Dosage: 10 MCG, Q1H
     Route: 062
  4. NORSPAN [Suspect]
     Active Substance: BUPRENORPHINE
     Dosage: 5 MCG, Q1H
     Route: 062

REACTIONS (2)
  - Dementia [Unknown]
  - Feeling abnormal [Unknown]
